FAERS Safety Report 9121387 (Version 1)
Quarter: 2013Q1

REPORT INFORMATION
  Report Type: Spontaneous
  Country: ES (occurrence: ES)
  Receive Date: 20130225
  Receipt Date: 20130225
  Transmission Date: 20140127
  Serious: Yes (Other)
  Sender: FDA-Public Use
  Company Number: ES-BAYER-2013-020782

PATIENT
  Age: 33 Year
  Sex: Female

DRUGS (4)
  1. DACARBAZINE [Suspect]
     Indication: HODGKIN^S DISEASE
  2. ADRIAMYCIN [Suspect]
     Indication: HODGKIN^S DISEASE
  3. BLEOMYCIN [Suspect]
     Indication: HODGKIN^S DISEASE
  4. VINBLASTINE [Suspect]
     Indication: HODGKIN^S DISEASE

REACTIONS (1)
  - Sarcoidosis [Recovered/Resolved]
